FAERS Safety Report 10217775 (Version 3)
Quarter: 2014Q4

REPORT INFORMATION
  Report Type: Report from Study
  Country: AR (occurrence: AR)
  Receive Date: 20140604
  Receipt Date: 20141103
  Transmission Date: 20150528
  Serious: Yes (Other)
  Sender: FDA-Public Use
  Company Number: AR-US-EMD SERONO, INC.-7295365

PATIENT
  Sex: Male

DRUGS (2)
  1. REBIF [Suspect]
     Active Substance: INTERFERON BETA-1A
     Indication: MULTIPLE SCLEROSIS
     Dates: start: 20060424
  2. REBIF [Suspect]
     Active Substance: INTERFERON BETA-1A
     Dosage: UNSPECIFIED DOSE
     Dates: start: 2005

REACTIONS (5)
  - Pyrexia [Not Recovered/Not Resolved]
  - Asthenia [Unknown]
  - Gait disturbance [Recovering/Resolving]
  - Pain [Recovering/Resolving]
  - Bone disorder [Recovered/Resolved]

NARRATIVE: CASE EVENT DATE: 2008
